FAERS Safety Report 6268696-X (Version None)
Quarter: 2009Q3

REPORT INFORMATION
  Report Type: 
  Country: None (occurrence: None)
  Receive Date: 20090714
  Receipt Date: 20090714
  Transmission Date: 20100115
  Serious: Yes (Hospitalization, Other)
  Sender: FDA-Public Use
  Company Number: None

PATIENT
  Age: 54 Year
  Sex: Female
  Weight: 83.4619 kg

DRUGS (5)
  1. ORLISTAT 60 MG GLAXO SMITH KLINE [Suspect]
     Indication: OBESITY
     Dosage: 60 MG TID PO
     Route: 048
     Dates: start: 20090617, end: 20090708
  2. ATENOLOL [Concomitant]
  3. VERAPAMIL [Concomitant]
  4. DETROL LA [Concomitant]
  5. TERBINAFINE HCL [Concomitant]

REACTIONS (1)
  - DIVERTICULITIS [None]
